FAERS Safety Report 23129443 (Version 1)
Quarter: 2023Q4

REPORT INFORMATION
  Report Type: Spontaneous
  Country: GB (occurrence: GB)
  Receive Date: 20231031
  Receipt Date: 20231031
  Transmission Date: 20240110
  Serious: Yes (Other)
  Sender: FDA-Public Use
  Company Number: None

PATIENT

DRUGS (1)
  1. CANDESARTAN [Suspect]
     Active Substance: CANDESARTAN
     Indication: Headache
     Dosage: 4 MILLIGRAM
     Route: 065

REACTIONS (2)
  - Immunosuppression [Recovering/Resolving]
  - Rash [Recovering/Resolving]
